FAERS Safety Report 7035402-0 (Version None)
Quarter: 2010Q4

REPORT INFORMATION
  Report Type: 
  Country: None (occurrence: None)
  Receive Date: 20101008
  Receipt Date: 20100922
  Transmission Date: 20110411
  Serious: Yes (Hospitalization, Other)
  Sender: FDA-Public Use
  Company Number: PHEH2007US13320

PATIENT
  Sex: Female

DRUGS (32)
  1. AREDIA [Suspect]
     Indication: MULTIPLE MYELOMA
     Dosage: 90 MG OVER 4 HRS EVERY MONTH
     Dates: start: 20011001, end: 20020101
  2. AREDIA [Suspect]
     Dosage: UNK
     Dates: start: 20080707
  3. ZOMETA [Suspect]
     Indication: MULTIPLE MYELOMA
     Dosage: 4 MG INFUSION OVER 25 MINS EVERY OTHER MONTH
     Dates: end: 20050721
  4. REVLIMID [Concomitant]
  5. DECADRON [Concomitant]
  6. DOXIL [Concomitant]
  7. VELCADE [Concomitant]
  8. CHEMOTHERAPEUTICS NOS [Concomitant]
  9. MAGNESIUM OXIDE [Concomitant]
     Dosage: 400 MG, BID
  10. AVALIDE [Concomitant]
     Dosage: 12.5 MG, QD
  11. XANAX [Concomitant]
     Dosage: 0.5 MG, QD
  12. K-DUR [Concomitant]
     Dosage: 20 MEQ, BID
  13. ALKERAN [Concomitant]
     Dosage: UNK
     Dates: start: 20011010
  14. CYTOXAN [Concomitant]
  15. VINCRISTINE + ADRIAMYCIN + DEXAMETHASONE [Concomitant]
     Dosage: UNK
     Dates: start: 20020521
  16. PREDNISONE [Concomitant]
     Dosage: UNK
     Dates: start: 20011001
  17. PROCRIT                            /00909301/ [Concomitant]
  18. THALIDOMIDE [Concomitant]
  19. VACCINE /PERTUSSIS/TETANUS/DIPHTHERIA/ ^CNG^ [Concomitant]
  20. INFLUENZA VACCINE [Concomitant]
  21. HEPATITIS B VACCINE [Concomitant]
  22. PNEUMOVAX 23 [Concomitant]
  23. POLIO-VACCINE [Concomitant]
  24. MELPHALAN HYDROCHLORIDE [Concomitant]
  25. FORTAMET [Concomitant]
  26. ASPIRIN [Concomitant]
  27. PENTAMIDINE ISETHIONATE [Concomitant]
  28. CYCLOPHOSPHAMIDE [Concomitant]
  29. AUGMENTIN '125' [Concomitant]
  30. CRESTOR [Concomitant]
  31. METFORMIN [Concomitant]
  32. MAGNESIUM OXIDE [Concomitant]

REACTIONS (52)
  - ANAEMIA [None]
  - ARTHRALGIA [None]
  - BONE LESION [None]
  - BONE MARROW TRANSPLANT [None]
  - BREAST DISCHARGE [None]
  - BREAST OPERATION [None]
  - CATHETER REMOVAL [None]
  - CHEST DISCOMFORT [None]
  - DECREASED APPETITE [None]
  - DEFORMITY [None]
  - DEPRESSION [None]
  - DIABETES MELLITUS [None]
  - DYSAESTHESIA [None]
  - FATIGUE [None]
  - FIBROUS DYSPLASIA OF BONE [None]
  - GAIT DISTURBANCE [None]
  - GASTRIC ULCER [None]
  - GOITRE [None]
  - HERPES ZOSTER [None]
  - HIP FRACTURE [None]
  - HYPERCALCAEMIA [None]
  - HYPOAESTHESIA [None]
  - IMPAIRED HEALING [None]
  - INFECTION [None]
  - INSOMNIA [None]
  - INTERNAL FIXATION OF FRACTURE [None]
  - INTRADUCTAL PAPILLOMA OF BREAST [None]
  - JOINT SURGERY [None]
  - LEUKOPENIA [None]
  - LOWER LIMB FRACTURE [None]
  - MALAISE [None]
  - MAMMARY DUCT ECTASIA [None]
  - MUSCULOSKELETAL PAIN [None]
  - NERVOUSNESS [None]
  - NEUROPATHY PERIPHERAL [None]
  - NEUTROPHIL COUNT DECREASED [None]
  - OSTEOARTHRITIS [None]
  - OSTEONECROSIS OF JAW [None]
  - PAIN [None]
  - PAIN IN EXTREMITY [None]
  - PERINEURIAL CYST [None]
  - RADICULOPATHY [None]
  - RADIOTHERAPY [None]
  - STEM CELL TRANSPLANT [None]
  - STREPTOCOCCUS TEST POSITIVE [None]
  - SUICIDAL IDEATION [None]
  - THROMBOCYTOPENIA [None]
  - THYROID MASS [None]
  - TOOTH EXTRACTION [None]
  - TOXIC NODULAR GOITRE [None]
  - WALKING AID USER [None]
  - WEIGHT DECREASED [None]
